FAERS Safety Report 6063800-0 (Version None)
Quarter: 2009Q1

REPORT INFORMATION
  Report Type: 
  Country: None (occurrence: None)
  Receive Date: 20090204
  Receipt Date: 20090121
  Transmission Date: 20090719
  Serious: Yes (Death, Hospitalization)
  Sender: FDA-Public Use
  Company Number: US-JNJFOC-20090107064

PATIENT
  Sex: Female
  Weight: 92.53 kg

DRUGS (6)
  1. FENTANYL-75 [Suspect]
     Indication: DRUG USE FOR UNKNOWN INDICATION
     Route: 065
  2. OPIATES [Concomitant]
  3. PROPOXYPHENE [Concomitant]
  4. TYLENOL [Concomitant]
     Route: 065
  5. OXYCODONE HCL [Concomitant]
  6. ELAVIL [Concomitant]
     Route: 065

REACTIONS (15)
  - ACUTE RESPIRATORY DISTRESS SYNDROME [None]
  - ASTHMA [None]
  - CARDIAC FAILURE CONGESTIVE [None]
  - CARDIOMEGALY [None]
  - CHRONIC OBSTRUCTIVE PULMONARY DISEASE [None]
  - CONDITION AGGRAVATED [None]
  - HEPATIC STEATOSIS [None]
  - NARCOTIC INTOXICATION [None]
  - NEPHROSCLEROSIS [None]
  - OVERDOSE [None]
  - PNEUMONIA [None]
  - PNEUMONIA ASPIRATION [None]
  - STAPHYLOCOCCAL INFECTION [None]
  - STREPTOCOCCAL INFECTION [None]
  - TRACHEAL STENOSIS [None]
